FAERS Safety Report 4481288-8 (Version None)
Quarter: 2004Q4

REPORT INFORMATION
  Report Type: 
  Country: None (occurrence: None)
  Receive Date: 20041021
  Receipt Date: 20041013
  Transmission Date: 20050328
  Serious: Yes (Hospitalization, Other)
  Sender: FDA-Public Use
  Company Number: PHEH2004US11097

PATIENT
  Sex: Female

DRUGS (2)
  1. FORADIL [Suspect]
     Dates: start: 20040623, end: 20040723
  2. SYNTHROID [Concomitant]

REACTIONS (8)
  - ASTHMA [None]
  - BLOOD PRESSURE INCREASED [None]
  - CONFUSIONAL STATE [None]
  - EPISTAXIS [None]
  - HAEMORRHAGE [None]
  - MOUTH HAEMORRHAGE [None]
  - RECTAL HAEMORRHAGE [None]
  - VAGINAL HAEMORRHAGE [None]
